FAERS Safety Report 12701111 (Version 1)
Quarter: 2016Q3

REPORT INFORMATION
  Report Type: Spontaneous
  Country: US (occurrence: US)
  Receive Date: 20160831
  Receipt Date: 20160831
  Transmission Date: 20161109
  Serious: Yes (Other)
  Sender: FDA-Public Use
  Company Number: US-CIPLA LTD.-2016US17716

PATIENT

DRUGS (1)
  1. BUPROPION. [Suspect]
     Active Substance: BUPROPION
     Dosage: 7 X 300 MG/D

REACTIONS (6)
  - Administration site reaction [Unknown]
  - Drug abuse [Unknown]
  - Delusion [Unknown]
  - Hallucination [Unknown]
  - Malaise [Unknown]
  - Decreased appetite [Unknown]
